FAERS Safety Report 5468639-2 (Version None)
Quarter: 2007Q3

REPORT INFORMATION
  Report Type: 
  Country: None (occurrence: None)
  Receive Date: 20070921
  Receipt Date: 20070913
  Transmission Date: 20080115
  Serious: Yes (Death, Other)
  Sender: FDA-Public Use
  Company Number: 056-C5013-07090544

PATIENT
  Age: 77 Year
  Sex: Male
  Weight: 79 kg

DRUGS (1)
  1. CC-5013 (LENALIDOMIDE) (CAPSULES) [Suspect]
     Indication: MYELODYSPLASTIC SYNDROME
     Dosage: 5 MG, DAILY, ORAL
     Route: 048
     Dates: start: 20070402, end: 20070902

REACTIONS (7)
  - ABDOMINAL PAIN [None]
  - DIARRHOEA [None]
  - FALL [None]
  - HAEMORRHAGIC STROKE [None]
  - HEAD INJURY [None]
  - MALAISE [None]
  - THROMBOCYTOPENIA [None]
